FAERS Safety Report 14574487 (Version 2)
Quarter: 2018Q1

REPORT INFORMATION
  Report Type: Spontaneous
  Country: US (occurrence: US)
  Receive Date: 20180226
  Receipt Date: 20180318
  Transmission Date: 20180509
  Serious: No
  Sender: FDA-Public Use
  Company Number: US-009507513-1802USA009406

PATIENT
  Sex: Female

DRUGS (1)
  1. NUVARING [Suspect]
     Active Substance: ETHINYL ESTRADIOL\ETONOGESTREL
     Dosage: 1 DF, STRENGTH: 0.015/0.12 MG
     Route: 067
     Dates: start: 20180212

REACTIONS (3)
  - Product quality issue [Unknown]
  - Device expulsion [Unknown]
  - No adverse event [Unknown]

NARRATIVE: CASE EVENT DATE: 201802
